FAERS Safety Report 13214916 (Version 3)
Quarter: 2017Q1

REPORT INFORMATION
  Report Type: Report from Study
  Country: US (occurrence: US)
  Receive Date: 20170210
  Receipt Date: 20170309
  Transmission Date: 20170428
  Serious: Yes (Other)
  Sender: FDA-Public Use
  Company Number: US-JAZZ-2017-US-000257

PATIENT
  Sex: Female

DRUGS (11)
  1. XYREM [Suspect]
     Active Substance: SODIUM OXYBATE
     Indication: NARCOLEPSY
     Dosage: 2.5 G, BID
     Route: 048
     Dates: start: 201008, end: 2010
  2. XYREM [Suspect]
     Active Substance: SODIUM OXYBATE
     Dosage: 3 G, QD
     Route: 048
     Dates: start: 2011, end: 2012
  3. XYREM [Suspect]
     Active Substance: SODIUM OXYBATE
     Dosage: 5 G, QD
     Route: 048
     Dates: start: 2011, end: 2012
  4. FISH OIL CONCENTRATE [Concomitant]
     Active Substance: FISH OIL
  5. VITAMIN D                          /00107901/ [Concomitant]
     Active Substance: ERGOCALCIFEROL
  6. ZOLOFT [Concomitant]
     Active Substance: SERTRALINE HYDROCHLORIDE
  7. XYREM [Suspect]
     Active Substance: SODIUM OXYBATE
     Indication: CATAPLEXY
     Dosage: DOSE ADJUSTMENT
     Route: 048
     Dates: start: 201010, end: 2010
  8. LISINOPRIL. [Suspect]
     Active Substance: LISINOPRIL
     Indication: HYPERTENSION
  9. SYNTHROID [Concomitant]
     Active Substance: LEVOTHYROXINE SODIUM
  10. NUVIGIL [Concomitant]
     Active Substance: ARMODAFINIL
  11. PROVIGIL [Concomitant]
     Active Substance: MODAFINIL

REACTIONS (10)
  - Urethral disorder [Unknown]
  - Abnormal behaviour [Unknown]
  - Sinus disorder [Unknown]
  - Somnambulism [Unknown]
  - Cough [Unknown]
  - Hypertension [Not Recovered/Not Resolved]
  - Abnormal sleep-related event [Unknown]
  - Vomiting [Unknown]
  - Product preparation error [Unknown]
  - Enuresis [Unknown]

NARRATIVE: CASE EVENT DATE: 2010
